FAERS Safety Report 5471102-6 (Version None)
Quarter: 2007Q3

REPORT INFORMATION
  Report Type: 
  Country: None (occurrence: None)
  Receive Date: 20070928
  Receipt Date: 20070920
  Transmission Date: 20080115
  Serious: Yes (Hospitalization)
  Sender: FDA-Public Use
  Company Number: JP-JNJFOC-20070904616

PATIENT
  Age: 52 Year
  Sex: Male

DRUGS (7)
  1. RISPERDAL [Suspect]
     Indication: DRUG USE FOR UNKNOWN INDICATION
     Route: 048
  2. FUROSEMIDE [Concomitant]
     Route: 048
  3. LACTULOSE [Concomitant]
     Route: 048
  4. HALOPERIDOL [Concomitant]
     Route: 049
  5. ALDACTONE [Concomitant]
     Route: 048
  6. ZOLPIDEM [Concomitant]
     Route: 048
  7. LANSOPRAZOLE [Concomitant]
     Route: 048

REACTIONS (4)
  - AMMONIA INCREASED [None]
  - BLOOD CREATINE PHOSPHOKINASE INCREASED [None]
  - CIRRHOSIS ALCOHOLIC [None]
  - HYPERGLYCAEMIA [None]
